FAERS Safety Report 18602209 (Version 1)
Quarter: 2020Q4

REPORT INFORMATION
  Report Type: Spontaneous
  Country: US (occurrence: US)
  Receive Date: 20201210
  Receipt Date: 20201210
  Transmission Date: 20210114
  Serious: No
  Sender: FDA-Public Use
  Company Number: US-BAUSCH-BL-2020-034062

PATIENT
  Sex: Male

DRUGS (1)
  1. FLUOROURACIL CREAM 5% [Suspect]
     Active Substance: FLUOROURACIL
     Indication: SKIN DISORDER
     Dosage: TO BE APPLIED TWICE DAILY FOR TWO WEEKS
     Route: 065
     Dates: start: 2020

REACTIONS (1)
  - Seborrhoea [Unknown]

NARRATIVE: CASE EVENT DATE: 2020
